FAERS Safety Report 4883935-5 (Version None)
Quarter: 2006Q1

REPORT INFORMATION
  Report Type: 
  Country: None (occurrence: None)
  Receive Date: 20060111
  Receipt Date: 20060103
  Transmission Date: 20060701
  Serious: Yes (Other)
  Sender: FDA-Public Use
  Company Number: 2004-03376

PATIENT
  Age: 38 Year
  Sex: Male

DRUGS (2)
  1. TUBERSOL [Suspect]
     Dosage: 0.5ML, I.M.
     Route: 030
     Dates: start: 20040804
  2. DIPTHERIA AND TETANUS TOXOIDS [Concomitant]

REACTIONS (11)
  - ARTHRALGIA [None]
  - BRACHIAL PLEXUS INJURY [None]
  - BREAST PAIN [None]
  - CERVICOBRACHIAL SYNDROME [None]
  - CHEST PAIN [None]
  - INCORRECT ROUTE OF DRUG ADMINISTRATION [None]
  - INSOMNIA [None]
  - NAUSEA [None]
  - SKIN DISCOLOURATION [None]
  - UNEVALUABLE EVENT [None]
  - WRONG DRUG ADMINISTERED [None]
